FAERS Safety Report 21375127 (Version 1)
Quarter: 2022Q3

REPORT INFORMATION
  Report Type: Spontaneous
  Country: US (occurrence: None)
  Receive Date: 20220925
  Receipt Date: 20220925
  Transmission Date: 20221027
  Serious: Yes (Hospitalization)
  Sender: FDA-Public Use
  Company Number: None

PATIENT
  Age: 59 Year
  Sex: Male
  Weight: 95 kg

DRUGS (18)
  1. BEBTELOVIMAB [Suspect]
     Active Substance: BEBTELOVIMAB
     Indication: COVID-19
     Dosage: OTHER FREQUENCY : ONCE;?
     Route: 042
     Dates: start: 20220921, end: 20220921
  2. OTEZLA [Concomitant]
     Active Substance: APREMILAST
  3. APIXABAN [Concomitant]
     Active Substance: APIXABAN
  4. AMLODIPINE [Concomitant]
     Active Substance: AMLODIPINE BESYLATE
  5. BOSENTAN [Concomitant]
     Active Substance: BOSENTAN
  6. EPOPROSTENOL [Concomitant]
     Active Substance: EPOPROSTENOL
  7. GABAPENTIN [Concomitant]
     Active Substance: GABAPENTIN
  8. METOPROLOL [Concomitant]
     Active Substance: METOPROLOL
  9. MONTELUKAST [Concomitant]
     Active Substance: MONTELUKAST SODIUM
  10. SPIRONOLACTONE [Concomitant]
     Active Substance: SPIRONOLACTONE
  11. TADALAFIL [Concomitant]
     Active Substance: TADALAFIL
  12. ALBUTEROL [Concomitant]
     Active Substance: ALBUTEROL
  13. DIGOXIN [Concomitant]
     Active Substance: DIGOXIN
  14. ALLEGRA [Concomitant]
     Active Substance: FEXOFENADINE HYDROCHLORIDE
  15. LASIX [Concomitant]
     Active Substance: FUROSEMIDE
  16. POTASSIUM CHLORIDE [Concomitant]
     Active Substance: POTASSIUM CHLORIDE
  17. SOTALOL [Concomitant]
     Active Substance: SOTALOL
  18. NASACORT [Concomitant]
     Active Substance: TRIAMCINOLONE ACETONIDE

REACTIONS (7)
  - Seizure [None]
  - Tongue biting [None]
  - Hypersensitivity [None]
  - Syncope [None]
  - Infusion related reaction [None]
  - Hypokalaemia [None]
  - COVID-19 [None]

NARRATIVE: CASE EVENT DATE: 20220921
